FAERS Safety Report 7153840-2 (Version None)
Quarter: 2010Q4

REPORT INFORMATION
  Report Type: 
  Country: None (occurrence: None)
  Receive Date: 20101213
  Receipt Date: 20100930
  Transmission Date: 20110411
  Serious: No
  Sender: FDA-Public Use
  Company Number: US-ABBOTT-10P-163-0674957-00

PATIENT
  Sex: Female
  Weight: 104.42 kg

DRUGS (3)
  1. MERIDIA [Suspect]
     Indication: PRODUCT USED FOR UNKNOWN INDICATION
     Dates: start: 20100922, end: 20100922
  2. METOPROLOL [Concomitant]
     Indication: HYPERTENSION
  3. TRAMADOL [Concomitant]
     Indication: ARTHRITIS

REACTIONS (4)
  - DIZZINESS [None]
  - DYSPNOEA [None]
  - HEART RATE INCREASED [None]
  - PALPITATIONS [None]
